FAERS Safety Report 5410096-6 (Version None)
Quarter: 2007Q3

REPORT INFORMATION
  Report Type: 
  Country: None (occurrence: None)
  Receive Date: 20070713
  Receipt Date: 20070413
  Transmission Date: 20080115
  Serious: No
  Sender: FDA-Public Use
  Company Number: 2007SP001331

PATIENT
  Age: 37 Year
  Sex: Female
  Weight: 54.8852 kg

DRUGS (7)
  1. LUNESTA [Suspect]
     Indication: INSOMNIA
     Dosage: 3 MG;PRN;ORAL
     Route: 048
     Dates: start: 20070409, end: 20070412
  2. SYNTHROID [Concomitant]
  3. SUDAFED 12 HOUR [Concomitant]
  4. CIPROFLOXACIN [Concomitant]
  5. CEPHALEXIN [Concomitant]
  6. MULTIVITAMIN [Concomitant]
  7. FOLIC ACID [Concomitant]

REACTIONS (1)
  - DYSGEUSIA [None]
